FAERS Safety Report 7072380-2 (Version None)
Quarter: 2010Q4

REPORT INFORMATION
  Report Type: 
  Country: None (occurrence: None)
  Receive Date: 20101029
  Receipt Date: 20100119
  Transmission Date: 20110411
  Serious: No
  Sender: FDA-Public Use
  Company Number: A0840291A

PATIENT
  Age: 42 Year
  Sex: Male

DRUGS (7)
  1. ADVAIR DISKUS 100/50 [Suspect]
     Indication: PNEUMONIA
     Dosage: 1PUFF TWICE PER DAY
     Route: 055
     Dates: start: 20091101
  2. SIMVASTATIN [Concomitant]
  3. LUNESTA [Concomitant]
  4. SINGULAIR [Concomitant]
  5. ZITHROMAX [Concomitant]
  6. PREDNISONE [Concomitant]
  7. VENTOLIN HFA [Concomitant]

REACTIONS (1)
  - VISION BLURRED [None]
